FAERS Safety Report 23756372 (Version 1)
Quarter: 2024Q2

REPORT INFORMATION
  Report Type: Spontaneous
  Country: US (occurrence: None)
  Receive Date: 20240417
  Receipt Date: 20240417
  Transmission Date: 20240716
  Serious: No
  Sender: FDA-Public Use
  Company Number: None

PATIENT
  Sex: Female

DRUGS (2)
  1. VERZENIO [Suspect]
     Active Substance: ABEMACICLIB
     Indication: Breast cancer
     Dosage: FREQUENCY : TWICE A DAY;?
     Route: 048
     Dates: start: 202403
  2. ZOFRAN [Concomitant]

REACTIONS (6)
  - Nausea [None]
  - Vomiting [None]
  - Decreased appetite [None]
  - Headache [None]
  - Dehydration [None]
  - Renal impairment [None]
